FAERS Safety Report 4527069-8 (Version None)
Quarter: 2004Q4

REPORT INFORMATION
  Report Type: 
  Country: None (occurrence: None)
  Receive Date: 20041213
  Receipt Date: 20041129
  Transmission Date: 20050328
  Serious: Yes (Hospitalization, Other)
  Sender: FDA-Public Use
  Company Number: 2003181809BR

PATIENT
  Age: 92 Year
  Sex: Female

DRUGS (1)
  1. SOMATROPIN (SOMATROPIN) [Suspect]
     Indication: HYPOPITUITARISM
     Dosage: 0.6 MG (QD)
     Dates: start: 20021226

REACTIONS (3)
  - FEMUR FRACTURE [None]
  - IMPLANT SITE INFLAMMATION [None]
  - INFLUENZA [None]
